FAERS Safety Report 18123558 (Version 1)
Quarter: 2020Q3

REPORT INFORMATION
  Report Type: Spontaneous
  Country: US (occurrence: US)
  Receive Date: 20200807
  Receipt Date: 20200807
  Transmission Date: 20201103
  Serious: No
  Sender: FDA-Public Use
  Company Number: None

PATIENT
  Age: 47 Year
  Sex: Female
  Weight: 58.5 kg

DRUGS (3)
  1. FULVESTRANT 500 MG IM Q28DAYS [Concomitant]
     Dates: start: 20180606, end: 20200615
  2. FEXOFENADINE 180 MG PO DAILY [Concomitant]
     Dates: start: 20200507
  3. ALPELISIB [Suspect]
     Active Substance: ALPELISIB
     Indication: BREAST CANCER METASTATIC
     Route: 048
     Dates: start: 20200507, end: 20200615

REACTIONS (4)
  - Stomatitis [None]
  - Diarrhoea [None]
  - Rash [None]
  - Therapy interrupted [None]

NARRATIVE: CASE EVENT DATE: 20200615
